FAERS Safety Report 25956174 (Version 1)
Quarter: 2025Q4

REPORT INFORMATION
  Report Type: Spontaneous
  Country: US (occurrence: None)
  Receive Date: 20251023
  Receipt Date: 20251023
  Transmission Date: 20260117
  Serious: Yes (Other)
  Sender: FDA-CTU
  Company Number: None

PATIENT
  Age: 52 Year
  Sex: Female

DRUGS (1)
  1. CAPECITABINE [Suspect]
     Active Substance: CAPECITABINE
     Dosage: 1500MG EVERY 12 HOURS FOR 14 DAYS ON AND 7 DAYS OFF?

REACTIONS (3)
  - Migraine [None]
  - Insomnia [None]
  - Therapy cessation [None]
